FAERS Safety Report 25263322 (Version 1)
Quarter: 2025Q2

REPORT INFORMATION
  Report Type: Spontaneous
  Country: US (occurrence: None)
  Receive Date: 20250502
  Receipt Date: 20250502
  Transmission Date: 20250717
  Serious: Yes (Hospitalization)
  Sender: FDA-CTU
  Company Number: None

PATIENT
  Age: 61 Year
  Sex: Female
  Weight: 77.1 kg

DRUGS (4)
  1. FLUOROURACIL [Suspect]
     Active Substance: FLUOROURACIL
  2. CAMPTOSAR [Suspect]
     Active Substance: IRINOTECAN HYDROCHLORIDE
  3. LEUCOVORIN CALCIUM [Suspect]
     Active Substance: LEUCOVORIN CALCIUM
  4. ELOXATIN [Suspect]
     Active Substance: OXALIPLATIN

REACTIONS (17)
  - Dysaesthesia [None]
  - Hyperglycaemia [None]
  - Blood alkaline phosphatase increased [None]
  - Hypoalbuminaemia [None]
  - Diarrhoea [None]
  - Nausea [None]
  - Vomiting [None]
  - Fatigue [None]
  - Abdominal pain [None]
  - Enteritis [None]
  - Gallbladder enlargement [None]
  - Cholelithiasis [None]
  - Intra-abdominal fluid collection [None]
  - Hyponatraemia [None]
  - Platelet count decreased [None]
  - Hypokalaemia [None]
  - Hypocalcaemia [None]

NARRATIVE: CASE EVENT DATE: 20250410
